FAERS Safety Report 24289849 (Version 1)
Quarter: 2024Q3

REPORT INFORMATION
  Report Type: Spontaneous
  Country: US (occurrence: US)
  Receive Date: 20240906
  Receipt Date: 20240906
  Transmission Date: 20241017
  Serious: No
  Sender: ROCHE
  Company Number: US-ROCHE-10000071760

PATIENT
  Age: 33 Year
  Sex: Male

DRUGS (2)
  1. XOLAIR PFS [Suspect]
     Active Substance: OMALIZUMAB
     Indication: Idiopathic urticaria
     Dosage: 150MG/M
     Route: 058
  2. XOLAIR PFS [Suspect]
     Active Substance: OMALIZUMAB

REACTIONS (2)
  - Petechiae [Unknown]
  - Pruritus [Unknown]
